FAERS Safety Report 9849421 (Version 1)
Quarter: 2014Q1

REPORT INFORMATION
  Report Type: Spontaneous
  Country: GR (occurrence: GR)
  Receive Date: 20140128
  Receipt Date: 20140128
  Transmission Date: 20141002
  Serious: Yes (Hospitalization, Other)
  Sender: FDA-Public Use
  Company Number: GR-PFIZER INC-2014018248

PATIENT
  Age: 44 Year
  Sex: Female

DRUGS (4)
  1. METHYLPREDNISOLONE [Suspect]
     Indication: IMMUNOSUPPRESSION
     Dosage: UNK
  2. MYCOPHENOLATE MOFETIL [Suspect]
     Indication: IMMUNOSUPPRESSION
     Dosage: UNK
  3. TACROLIMUS [Suspect]
     Indication: IMMUNOSUPPRESSION
     Dosage: UNK
  4. PREDNISOLONE [Suspect]
     Indication: IMMUNOSUPPRESSION
     Dosage: 7.5 MG, UNK

REACTIONS (1)
  - Encephalitis [Recovered/Resolved]
